FAERS Safety Report 12895136 (Version 1)
Quarter: 2016Q4

REPORT INFORMATION
  Report Type: Spontaneous
  Country: US (occurrence: US)
  Receive Date: 20161028
  Receipt Date: 20161028
  Transmission Date: 20170207
  Serious: Yes (Death, Hospitalization)
  Sender: FDA-Public Use
  Company Number: None

PATIENT
  Age: 18 Year
  Sex: Male
  Weight: 42.3 kg

DRUGS (2)
  1. ONCASPAR [Suspect]
     Active Substance: PEGASPARGASE
     Dates: end: 20161009
  2. CYTARABINE. [Suspect]
     Active Substance: CYTARABINE
     Dates: end: 20161005

REACTIONS (6)
  - Seizure [None]
  - Malaise [None]
  - Dyspnoea [None]
  - Headache [None]
  - Gait disturbance [None]
  - Fall [None]

NARRATIVE: CASE EVENT DATE: 20161022
